FAERS Safety Report 8356434-6 (Version None)
Quarter: 2012Q2

REPORT INFORMATION
  Report Type: 
  Country: None (occurrence: None)
  Receive Date: 20120511
  Receipt Date: 20120511
  Transmission Date: 20120825
  Serious: No
  Sender: FDA-Public Use
  Company Number: None

PATIENT
  Age: 64 Year
  Sex: Female
  Weight: 86.637 kg

DRUGS (1)
  1. REVLIMID [Suspect]
     Indication: CHRONIC LYMPHOCYTIC LEUKAEMIA RECURRENT
     Dosage: 5 MG EVERY OTHER DAY PO
     Route: 048
     Dates: start: 20120414, end: 20120420

REACTIONS (10)
  - THROMBOCYTOPENIA [None]
  - HYPOKALAEMIA [None]
  - DYSPNOEA [None]
  - COUGH [None]
  - BLOOD POTASSIUM DECREASED [None]
  - PLATELET COUNT DECREASED [None]
  - ELECTROCARDIOGRAM QT PROLONGED [None]
  - CHEST DISCOMFORT [None]
  - THROAT TIGHTNESS [None]
  - HAEMOGLOBIN DECREASED [None]
